FAERS Safety Report 25602505 (Version 1)
Quarter: 2025Q3

REPORT INFORMATION
  Report Type: Spontaneous
  Country: US (occurrence: US)
  Receive Date: 20250724
  Receipt Date: 20250724
  Transmission Date: 20251020
  Serious: No
  Sender: BRECKENRIDGE PHARMACEUTICAL, INC.
  Company Number: US-Breckenridge Pharmaceutical, Inc.-2181140

PATIENT
  Age: 69 Year
  Sex: Female
  Weight: 81.818 kg

DRUGS (3)
  1. DULOXETINE HYDROCHLORIDE [Suspect]
     Active Substance: DULOXETINE HYDROCHLORIDE
     Indication: Post herpetic neuralgia
  2. GABAPENTIN [Concomitant]
     Active Substance: GABAPENTIN
  3. ROSUVASTATIN [Concomitant]
     Active Substance: ROSUVASTATIN

REACTIONS (10)
  - Hyperhidrosis [Not Recovered/Not Resolved]
  - Therapeutic product effect incomplete [Unknown]
  - Feeling abnormal [Unknown]
  - Feeling jittery [Unknown]
  - Mental disorder [Unknown]
  - Menopausal symptoms [Not Recovered/Not Resolved]
  - Affect lability [Not Recovered/Not Resolved]
  - Dizziness [Unknown]
  - Tremor [Unknown]
  - Nausea [Unknown]
